FAERS Safety Report 7397089-7 (Version None)
Quarter: 2011Q2

REPORT INFORMATION
  Report Type: 
  Country: None (occurrence: None)
  Receive Date: 20110406
  Receipt Date: 20110401
  Transmission Date: 20111010
  Serious: Yes (Hospitalization)
  Sender: FDA-Public Use
  Company Number: A0889213A

PATIENT
  Sex: Female
  Weight: 88.5 kg

DRUGS (2)
  1. AVANDIA [Suspect]
     Indication: TYPE 2 DIABETES MELLITUS
     Dosage: 4MG PER DAY
     Route: 048
     Dates: start: 20091001, end: 20091101
  2. GLIPIZIDE [Concomitant]

REACTIONS (8)
  - ECONOMIC PROBLEM [None]
  - PAIN [None]
  - CARDIOVASCULAR DISORDER [None]
  - ANHEDONIA [None]
  - INJURY [None]
  - MALAISE [None]
  - FEAR [None]
  - EMOTIONAL DISTRESS [None]
